FAERS Safety Report 15631784 (Version 1)
Quarter: 2018Q4

REPORT INFORMATION
  Report Type: Spontaneous
  Country: US (occurrence: US)
  Receive Date: 20181113
  Receipt Date: 20181113
  Transmission Date: 20190205
  Serious: Yes (Other)
  Sender: FDA-Public Use
  Company Number: None

PATIENT
  Age: 63 Year
  Sex: Female
  Weight: 74.16 kg

DRUGS (5)
  1. CHROMIUM [Concomitant]
     Active Substance: CHROMIC CHLORIDE\CHROMIUM
  2. TURMERIC [Concomitant]
     Active Substance: HERBALS\TURMERIC
  3. CALCIUM- VITAMIN D- MINERALS [Concomitant]
  4. IBRANCE [Suspect]
     Active Substance: PALBOCICLIB
  5. ANASTROZOLE. [Concomitant]
     Active Substance: ANASTROZOLE

REACTIONS (1)
  - Sinus disorder [None]

NARRATIVE: CASE EVENT DATE: 20181113
